FAERS Safety Report 24941284 (Version 1)
Quarter: 2025Q1

REPORT INFORMATION
  Report Type: Spontaneous
  Country: AU (occurrence: AU)
  Receive Date: 20250207
  Receipt Date: 20250207
  Transmission Date: 20250409
  Serious: Yes (Hospitalization, Other)
  Sender: RANBAXY
  Company Number: AU-SUN PHARMACEUTICAL INDUSTRIES LTD-2025R1-492322

PATIENT
  Age: 70 Year
  Sex: Female

DRUGS (17)
  1. VECURONIUM [Suspect]
     Active Substance: VECURONIUM BROMIDE
     Indication: Premedication
     Route: 065
     Dates: start: 20240911
  2. LIDOCAINE [Suspect]
     Active Substance: LIDOCAINE
     Indication: Premedication
     Route: 065
     Dates: start: 20240911
  3. OXYCODONE [Suspect]
     Active Substance: OXYCODONE
     Indication: Premedication
     Route: 065
     Dates: start: 20240911
  4. PROPOFOL [Suspect]
     Active Substance: PROPOFOL
     Indication: Premedication
     Route: 065
     Dates: start: 20240911
  5. ALFENTANIL HYDROCHLORIDE [Suspect]
     Active Substance: ALFENTANIL HYDROCHLORIDE
     Indication: Premedication
     Route: 065
     Dates: start: 20240911
  6. GLYCOPYRROLATE\NEOSTIGMINE [Suspect]
     Active Substance: GLYCOPYRROLATE\NEOSTIGMINE
     Indication: Premedication
     Route: 065
     Dates: start: 20240911
  7. CEFAZOLIN SODIUM [Concomitant]
     Active Substance: CEFAZOLIN SODIUM
     Indication: Premedication
     Route: 065
     Dates: start: 20240911
  8. CLONIDINE HYDROCHLORIDE [Concomitant]
     Active Substance: CLONIDINE HYDROCHLORIDE
     Indication: Premedication
     Route: 065
     Dates: start: 20240911
  9. DEXAMETHASONE [Concomitant]
     Active Substance: DEXAMETHASONE
     Indication: Premedication
     Route: 065
     Dates: start: 20240911
  10. MAGNESIUM SULFATE [Concomitant]
     Active Substance: MAGNESIUM SULFATE
     Indication: Premedication
     Route: 065
     Dates: start: 20240911
  11. MELOXICAM [Concomitant]
     Active Substance: MELOXICAM
     Indication: Premedication
     Route: 065
  12. METHYLENE BLUE [Concomitant]
     Active Substance: METHYLENE BLUE
     Indication: Premedication
     Route: 065
     Dates: start: 20240911
  13. OMEPRAZOLE [Concomitant]
     Active Substance: OMEPRAZOLE
     Indication: Premedication
     Route: 065
  14. ACETAMINOPHEN [Concomitant]
     Active Substance: ACETAMINOPHEN
     Indication: Premedication
     Route: 065
  15. PARECOXIB SODIUM [Concomitant]
     Active Substance: PARECOXIB SODIUM
     Indication: Premedication
     Route: 065
     Dates: start: 20240911
  16. TELMISARTAN [Concomitant]
     Active Substance: TELMISARTAN
     Indication: Premedication
     Route: 048
  17. URSODIOL [Concomitant]
     Active Substance: URSODIOL
     Indication: Premedication
     Route: 048

REACTIONS (2)
  - Acute myocardial infarction [Unknown]
  - Cardiac arrest [Unknown]

NARRATIVE: CASE EVENT DATE: 20240911
